FAERS Safety Report 5503950-8 (Version None)
Quarter: 2007Q4

REPORT INFORMATION
  Report Type: 
  Country: None (occurrence: None)
  Receive Date: 20071101
  Receipt Date: 20071031
  Transmission Date: 20080405
  Serious: Yes (Hospitalization)
  Sender: FDA-Public Use
  Company Number: US-BRISTOL-MYERS SQUIBB COMPANY-13965504

PATIENT
  Sex: Female

DRUGS (2)
  1. CISPLATIN [Suspect]
     Indication: SQUAMOUS CELL CARCINOMA
     Dosage: 155MG FORM 25-APR-2005 TO NI, 154MG FROM 16-MAY-2005 TO NI.
     Dates: start: 20050606
  2. RADIOTHERAPY [Suspect]

REACTIONS (1)
  - RESPIRATORY DISTRESS [None]
